FAERS Safety Report 23211539 (Version 1)
Quarter: 2023Q4

REPORT INFORMATION
  Report Type: Spontaneous
  Country: DE (occurrence: DE)
  Receive Date: 20231121
  Receipt Date: 20231121
  Transmission Date: 20240110
  Serious: Yes (Other)
  Sender: FDA-Public Use
  Company Number: DE-SANDOZ-SDZ2023DE049303

PATIENT
  Age: 76 Year
  Sex: Female

DRUGS (1)
  1. TAMOXIFEN [Suspect]
     Active Substance: TAMOXIFEN
     Indication: Breast cancer
     Dosage: 10 MG
     Route: 065

REACTIONS (7)
  - Suicidal ideation [Recovering/Resolving]
  - Vulvovaginal pruritus [Recovering/Resolving]
  - Fibromyalgia [Recovering/Resolving]
  - Sleep disorder [Recovering/Resolving]
  - Osteoarthritis [Recovering/Resolving]
  - Vaginal discharge [Recovering/Resolving]
  - Depression [Recovering/Resolving]
